FAERS Safety Report 4456104-0 (Version None)
Quarter: 2004Q3

REPORT INFORMATION
  Report Type: 
  Country: None (occurrence: None)
  Receive Date: 20040920
  Receipt Date: 20040907
  Transmission Date: 20050211
  Serious: Yes (Life-Threatening)
  Sender: FDA-Public Use
  Company Number: 04H-167-0272626-00

PATIENT
  Age: 13 Year
  Sex: Female
  Weight: 33 kg

DRUGS (7)
  1. ETOMIDATE [Suspect]
     Indication: ANAESTHESIA
     Dosage: 10 MG, ONCE, INTRAVENOUS
     Route: 042
  2. LORAZEPAM [Concomitant]
  3. ALBUTEROL [Concomitant]
  4. FENTANYL [Concomitant]
  5. VECURONIUM BROMIDE [Concomitant]
  6. ENFLURANE [Concomitant]
  7. OXYGEN [Concomitant]

REACTIONS (2)
  - ANAPHYLACTOID REACTION [None]
  - CARDIAC ARREST [None]
